FAERS Safety Report 16131031 (Version 1)
Quarter: 2019Q1

REPORT INFORMATION
  Report Type: Spontaneous
  Country: FR (occurrence: FR)
  Receive Date: 20190328
  Receipt Date: 20190328
  Transmission Date: 20190418
  Serious: Yes (Other)
  Sender: FDA-Public Use
  Company Number: FR-BEH-2019100562

PATIENT
  Age: 60 Year
  Sex: Male
  Weight: 72 kg

DRUGS (4)
  1. PRIVIGEN [Suspect]
     Active Substance: HUMAN IMMUNOGLOBULIN G
     Dosage: 70 G, UNK
     Route: 041
     Dates: start: 20190221, end: 20190223
  2. PRIVIGEN [Suspect]
     Active Substance: HUMAN IMMUNOGLOBULIN G
     Indication: ACQUIRED VON WILLEBRAND^S DISEASE
     Dosage: 70 G, UNK
     Route: 041
     Dates: start: 20190221, end: 20190223
  3. VENOFER [Suspect]
     Active Substance: IRON SUCROSE
     Indication: IRON DEFICIENCY ANAEMIA
     Dosage: 300 MG, TOT
     Route: 041
     Dates: start: 20190223
  4. PRIVIGEN [Suspect]
     Active Substance: HUMAN IMMUNOGLOBULIN G
     Dosage: 70 G, UNK
     Route: 041
     Dates: start: 20190221, end: 20190223

REACTIONS (4)
  - Rash macular [Recovering/Resolving]
  - Purpura [Not Recovered/Not Resolved]
  - Pruritus [Not Recovered/Not Resolved]
  - Oedema peripheral [Not Recovered/Not Resolved]

NARRATIVE: CASE EVENT DATE: 20190224
